FAERS Safety Report 5313939-X (Version None)
Quarter: 2007Q2

REPORT INFORMATION
  Report Type: 
  Country: None (occurrence: None)
  Receive Date: 20070501
  Receipt Date: 20070419
  Transmission Date: 20071010
  Serious: Yes (Hospitalization)
  Sender: FDA-Public Use
  Company Number: FR-PFIZER INC-2007031954

PATIENT
  Age: 46 Year
  Sex: Female
  Weight: 68 kg

DRUGS (5)
  1. TAHOR [Suspect]
     Route: 048
  2. SEGLOR [Suspect]
     Route: 048
  3. CLOZAPINE [Suspect]
     Route: 048
     Dates: start: 20060823, end: 20061221
  4. PROPRANOLOL [Concomitant]
     Dosage: DAILY DOSE:160MG
     Route: 048
  5. METFORMIN HCL [Concomitant]
     Route: 048

REACTIONS (1)
  - CARDIAC FAILURE [None]
